FAERS Safety Report 7044162-9 (Version None)
Quarter: 2010Q4

REPORT INFORMATION
  Report Type: 
  Country: None (occurrence: None)
  Receive Date: 20101013
  Receipt Date: 20101001
  Transmission Date: 20110411
  Serious: Yes (Other)
  Sender: FDA-Public Use
  Company Number: US-PFIZER INC-2010109920

PATIENT
  Sex: Male
  Weight: 108.84 kg

DRUGS (12)
  1. LYRICA [Suspect]
     Indication: COMPLEX REGIONAL PAIN SYNDROME
     Dosage: 50 MG, 2X/DAY
     Route: 048
     Dates: start: 20100415
  2. LYRICA [Suspect]
     Indication: PAIN
     Dosage: 100 MG, 2X/DAY
  3. LYRICA [Suspect]
     Dosage: 150 MG, 2X/DAY
     Route: 048
     Dates: start: 20100401
  4. DILANTIN [Suspect]
     Indication: CONVULSION
     Dosage: UNK
     Route: 048
     Dates: start: 20100401, end: 20100415
  5. DILANTIN [Suspect]
     Indication: ABDOMINAL PAIN UPPER
  6. LASIX [Suspect]
     Indication: OEDEMA PERIPHERAL
     Dosage: 40 MG, DAILY
     Route: 048
     Dates: end: 20100930
  7. CARDIZEM CD [Concomitant]
     Indication: HYPERTENSION
     Dosage: 240 MG, 1X/DAY
     Route: 048
  8. NORVASC [Concomitant]
     Indication: CARDIAC DISORDER
     Dosage: 10 MG, 1X/DAY
     Route: 048
  9. SIMVASTATIN [Concomitant]
     Indication: BLOOD CHOLESTEROL INCREASED
     Dosage: 20 MG, 1X/DAY
  10. AMLODIPINE [Concomitant]
     Indication: HYPERTENSION
     Dosage: 10 MG, 1X/DAY
  11. TAMSULOSIN HYDROCHLORIDE [Concomitant]
     Indication: NEUROGENIC BLADDER
     Dosage: 0.4 MG, 1X/DAY
     Route: 048
  12. ACETYLSALICYLIC ACID [Concomitant]
     Indication: CEREBROVASCULAR ACCIDENT PROPHYLAXIS
     Dosage: 325 MG, 1X/DAY

REACTIONS (5)
  - BLOOD POTASSIUM ABNORMAL [None]
  - OEDEMA [None]
  - OEDEMA PERIPHERAL [None]
  - RASH [None]
  - WEIGHT INCREASED [None]
